FAERS Safety Report 5332317-0 (Version None)
Quarter: 2007Q2

REPORT INFORMATION
  Report Type: 
  Country: None (occurrence: None)
  Receive Date: 20070521
  Receipt Date: 20070521
  Transmission Date: 20071010
  Serious: Yes (Hospitalization)
  Sender: FDA-Public Use
  Company Number: None

PATIENT
  Sex: Male
  Weight: 80 kg

DRUGS (13)
  1. REMICADE [Suspect]
     Indication: CROHN'S DISEASE
     Dosage: 400 MG 4/25/07 AND 5/8/07 IV BOLUS
     Route: 040
     Dates: start: 20070425, end: 20070508
  2. PREVACID [Concomitant]
  3. TOPROL-XL [Concomitant]
  4. LEVOTHYROXINE SODIUM [Concomitant]
  5. PULMICORT [Concomitant]
  6. ASPIRIN [Concomitant]
  7. CARAFATE [Concomitant]
  8. GLIPIZIDE [Concomitant]
  9. AMIODARONE HCL [Concomitant]
  10. ELAVIL [Concomitant]
  11. PENTASA [Concomitant]
  12. KLOR-CON [Concomitant]
  13. LASIX [Concomitant]

REACTIONS (8)
  - ASTHENIA [None]
  - CONFUSIONAL STATE [None]
  - FATIGUE [None]
  - HEADACHE [None]
  - PYREXIA [None]
  - RASH MACULO-PAPULAR [None]
  - SERUM SICKNESS [None]
  - SWELLING FACE [None]
